FAERS Safety Report 9606958 (Version 1)
Quarter: 2013Q4

REPORT INFORMATION
  Report Type: Report from Study
  Country: AU (occurrence: AU)
  Receive Date: 20131008
  Receipt Date: 20131008
  Transmission Date: 20140711
  Serious: Yes (Other)
  Sender: FDA-Public Use
  Company Number: AU-ROCHE-1285714

PATIENT
  Age: 71 Year
  Sex: Female

DRUGS (5)
  1. RITUXIMAB [Suspect]
     Indication: ENCEPHALITIS
     Dosage: 500 MG TWICE
     Route: 065
  2. PREDNISONE [Concomitant]
     Route: 065
  3. VALPROATE [Concomitant]
     Route: 065
  4. VALPROATE [Concomitant]
     Route: 065
  5. LEVETIRACETAM [Concomitant]

REACTIONS (2)
  - Pneumonia aspiration [Unknown]
  - Off label use [Unknown]
